FAERS Safety Report 8193088-6 (Version None)
Quarter: 2012Q1

REPORT INFORMATION
  Report Type: 
  Country: None (occurrence: None)
  Receive Date: 20120308
  Receipt Date: 20120308
  Transmission Date: 20120608
  Serious: No
  Sender: FDA-Public Use
  Company Number: None

PATIENT
  Age: 49 Year
  Sex: Male
  Weight: 43.091 kg

DRUGS (1)
  1. BOTOX [Suspect]

REACTIONS (4)
  - HYPOAESTHESIA [None]
  - LACRIMAL DISORDER [None]
  - CONTUSION [None]
  - SWELLING [None]
